FAERS Safety Report 17209874 (Version 4)
Quarter: 2020Q2

REPORT INFORMATION
  Report Type: Spontaneous
  Country: BE (occurrence: BE)
  Receive Date: 20191227
  Receipt Date: 20200527
  Transmission Date: 20200713
  Serious: Yes (Hospitalization, Other)
  Sender: FDA-Public Use
  Company Number: BE-JNJFOC-20191234015

PATIENT
  Age: 7 Month
  Sex: Female

DRUGS (2)
  1. INFLIXIMAB, RECOMBINANT [Suspect]
     Active Substance: INFLIXIMAB
     Indication: PRODUCT USED FOR UNKNOWN INDICATION
     Dosage: UNK
     Route: 064
  2. MESALAZINE [Suspect]
     Active Substance: MESALAMINE
     Indication: PRODUCT USED FOR UNKNOWN INDICATION
     Route: 064

REACTIONS (9)
  - Oral candidiasis [Unknown]
  - Pyrexia [Unknown]
  - Neutropenia neonatal [Recovered/Resolved]
  - Otitis media acute [Unknown]
  - Pharyngitis [Unknown]
  - Foetal exposure during pregnancy [Recovered/Resolved]
  - Tonsillitis [Unknown]
  - Respiratory tract infection [Unknown]
  - Dermatitis [Recovered/Resolved]
